FAERS Safety Report 8525169-9 (Version None)
Quarter: 2012Q3

REPORT INFORMATION
  Report Type: 
  Country: None (occurrence: None)
  Receive Date: 20120720
  Receipt Date: 20120711
  Transmission Date: 20120928
  Serious: Yes (Other)
  Sender: FDA-Public Use
  Company Number: PHEH2011US03214

PATIENT
  Age: 57 Year
  Sex: Female

DRUGS (7)
  1. ESTROGEN-METHYLTESTOSTERONE [Concomitant]
     Dosage: UNK UKN, UNK
  2. SYNTHROID [Concomitant]
     Dosage: UNK UKN, UNK
  3. GILENYA [Suspect]
     Indication: MULTIPLE SCLEROSIS
     Dosage: 0.5 MG, QD
     Route: 048
     Dates: start: 20110718
  4. OMEPRAZOLE [Concomitant]
     Dosage: UNK UKN, UNK
  5. HYDROCODONE BITARTRATE [Concomitant]
     Dosage: UNK UKN, UNK
  6. PHENERGAN HCL [Concomitant]
     Dosage: UNK UKN, UNK
  7. BENTYL [Concomitant]
     Dosage: UNK UKN, UNK

REACTIONS (7)
  - CENTRAL NERVOUS SYSTEM LESION [None]
  - NERVOUS SYSTEM DISORDER [None]
  - WEIGHT DECREASED [None]
  - MUSCLE SPASMS [None]
  - DIARRHOEA [None]
  - PROGRESSIVE MULTIPLE SCLEROSIS [None]
  - NAUSEA [None]
